FAERS Safety Report 20798883 (Version 15)
Quarter: 2022Q3

REPORT INFORMATION
  Report Type: Spontaneous
  Country: US (occurrence: US)
  Receive Date: 20220507
  Receipt Date: 20220809
  Transmission Date: 20221026
  Serious: No
  Sender: FDA-Public Use
  Company Number: US-UNITED THERAPEUTICS-UNT-2022-009702

PATIENT
  Age: 55 Year
  Sex: Female
  Weight: 45.805 kg

DRUGS (18)
  1. REMODULIN [Suspect]
     Active Substance: TREPROSTINIL
     Indication: Pulmonary arterial hypertension
     Dosage: UNK, CONTINUING
     Route: 058
     Dates: start: 20210908
  2. REMODULIN [Suspect]
     Active Substance: TREPROSTINIL
     Dosage: 0.0265 ?G/KG, CONTINUING
     Route: 058
  3. REMODULIN [Suspect]
     Active Substance: TREPROSTINIL
     Dosage: UNK, CONTINUING
     Route: 058
     Dates: end: 20220430
  4. REMODULIN [Suspect]
     Active Substance: TREPROSTINIL
     Dosage: UNK (AT RATE 0.088 ML/HR), CONTINUING
     Route: 058
     Dates: start: 20220430
  5. REMODULIN [Suspect]
     Active Substance: TREPROSTINIL
     Dosage: 0.027 ?G/KG, CONTINUING
     Route: 058
  6. REMODULIN [Suspect]
     Active Substance: TREPROSTINIL
     Dosage: 0.029 ?G/KG, CONTINUING
     Route: 058
     Dates: start: 20220602
  7. REMODULIN [Suspect]
     Active Substance: TREPROSTINIL
     Indication: Pulmonary arterial hypertension
     Dosage: UNK, CONTINUING
     Route: 058
     Dates: start: 20210908
  8. REMODULIN [Suspect]
     Active Substance: TREPROSTINIL
     Dosage: 0.0305 ?G/KG, CONTINUING
     Route: 058
  9. REMODULIN [Suspect]
     Active Substance: TREPROSTINIL
     Dosage: 0.035 ?G/KG, CONTINUING
     Route: 058
  10. TADALAFIL [Suspect]
     Active Substance: TADALAFIL
     Indication: Product used for unknown indication
     Dosage: UNK
     Route: 065
     Dates: start: 202201
  11. POTASSIUM [Suspect]
     Active Substance: POTASSIUM
     Indication: Blood potassium decreased
     Dosage: UNK
     Route: 065
  12. LECITHIN\POLOXAMER 407 [Suspect]
     Active Substance: LECITHIN\POLOXAMER 407
     Indication: Product used for unknown indication
     Dosage: UNK
     Route: 065
  13. TYLENOL [Suspect]
     Active Substance: ACETAMINOPHEN
     Indication: Headache
     Dosage: UNK
     Route: 065
  14. OPSUMIT [Suspect]
     Active Substance: MACITENTAN
     Indication: Product used for unknown indication
     Dosage: UNK
     Route: 065
     Dates: start: 202205
  15. OPSUMIT [Suspect]
     Active Substance: MACITENTAN
     Dosage: UNK (DOSE CHANGED AT EVENING)
     Route: 065
  16. OPSUMIT [Suspect]
     Active Substance: MACITENTAN
     Dosage: UNK
     Route: 065
     Dates: start: 20220604
  17. FUROSEMIDE [Suspect]
     Active Substance: FUROSEMIDE
     Indication: Product used for unknown indication
     Dosage: UNK
     Route: 065
  18. LASIX [Suspect]
     Active Substance: FUROSEMIDE
     Indication: Product used for unknown indication
     Route: 065

REACTIONS (61)
  - Visual impairment [Not Recovered/Not Resolved]
  - Dyspnoea [Unknown]
  - Fluid retention [Unknown]
  - Insomnia [Unknown]
  - Fatigue [Unknown]
  - Dizziness [Unknown]
  - Device dislocation [Unknown]
  - Gastric dilatation [Unknown]
  - Infusion site pain [Not Recovered/Not Resolved]
  - Infusion site warmth [Unknown]
  - Pain [Unknown]
  - Infusion site discolouration [Unknown]
  - Hypotension [Unknown]
  - Diarrhoea [Not Recovered/Not Resolved]
  - Body temperature fluctuation [Unknown]
  - Pain in jaw [Unknown]
  - Infusion site induration [Unknown]
  - Headache [Not Recovered/Not Resolved]
  - Gait disturbance [Unknown]
  - Device maintenance issue [Unknown]
  - Infusion site bruising [Unknown]
  - Infusion site pruritus [Unknown]
  - Abdominal pain upper [Unknown]
  - Constipation [Unknown]
  - Product leakage [Recovered/Resolved]
  - Drug hypersensitivity [Unknown]
  - Device issue [Recovered/Resolved]
  - Blood potassium decreased [Unknown]
  - Treatment noncompliance [Unknown]
  - Cough [Not Recovered/Not Resolved]
  - Vomiting [Not Recovered/Not Resolved]
  - Abdominal pain [Unknown]
  - Exposure to toxic agent [Unknown]
  - Therapy non-responder [Unknown]
  - Chest discomfort [Recovering/Resolving]
  - Dermatitis contact [Unknown]
  - Device failure [Unknown]
  - Mydriasis [Unknown]
  - Laboratory test abnormal [Unknown]
  - Balance disorder [Unknown]
  - Respiratory tract congestion [Unknown]
  - Oedema peripheral [Unknown]
  - Rash [Unknown]
  - Axillary web syndrome [Unknown]
  - Groin pain [Unknown]
  - Oesophageal discomfort [Unknown]
  - Nasal congestion [Unknown]
  - Rhinorrhoea [Unknown]
  - Nasopharyngitis [Unknown]
  - Swelling [Unknown]
  - Somnolence [Unknown]
  - Pruritus [Unknown]
  - Miosis [Unknown]
  - Choking sensation [Not Recovered/Not Resolved]
  - Retching [Unknown]
  - Tongue discomfort [Unknown]
  - Smoke sensitivity [Unknown]
  - Illness [Unknown]
  - Non-24-hour sleep-wake disorder [Recovering/Resolving]
  - Anisocoria [Not Recovered/Not Resolved]
  - Infusion site erythema [Unknown]

NARRATIVE: CASE EVENT DATE: 20220101
